FAERS Safety Report 16181299 (Version 1)
Quarter: 2019Q2

REPORT INFORMATION
  Report Type: Spontaneous
  Country: US (occurrence: US)
  Receive Date: 20190410
  Receipt Date: 20190410
  Transmission Date: 20190711
  Serious: Yes (Other)
  Sender: FDA-Public Use
  Company Number: US-MALLINCKRODT-T201902793

PATIENT
  Age: 75 Year
  Sex: Male

DRUGS (1)
  1. H.P. ACTHAR [Suspect]
     Active Substance: CORTICOTROPIN
     Indication: RHEUMATOID ARTHRITIS
     Dosage: 80 UNITS/1 ML, TWO TIMES A WEEK AS DIRECTED
     Route: 058

REACTIONS (2)
  - Knee operation [Unknown]
  - Arthropathy [Unknown]

NARRATIVE: CASE EVENT DATE: 20190227
